FAERS Safety Report 22167284 (Version 1)
Quarter: 2023Q1

REPORT INFORMATION
  Report Type: Spontaneous
  Country: US (occurrence: None)
  Receive Date: 20230331
  Receipt Date: 20230331
  Transmission Date: 20230417
  Serious: Yes (Hospitalization)
  Sender: FDA-Public Use
  Company Number: None

PATIENT
  Age: 52 Year
  Sex: Male
  Weight: 107.95 kg

DRUGS (14)
  1. ZARXIO [Suspect]
     Active Substance: FILGRASTIM-SNDZ
     Indication: Colon cancer
     Dosage: FREQUENCY : 3 TIMES A DAY;?
     Route: 058
  2. GABAPENTIN [Concomitant]
  3. ENOXAPARIN [Concomitant]
  4. ERYTHROMYCIN [Concomitant]
  5. Fursoemide [Concomitant]
  6. METHYLPREDNISOLONE [Concomitant]
  7. METOPROLOL SUCCINATE [Concomitant]
     Active Substance: METOPROLOL SUCCINATE
  8. NEOMYCIN [Concomitant]
  9. NIFEDIPINE [Concomitant]
  10. OMEPRAZOLE [Concomitant]
  11. ONDANSETRAN [Concomitant]
  12. PREDNISONE [Concomitant]
     Active Substance: PREDNISONE
  13. PROCHLORPERAZINE [Concomitant]
  14. REGLAN [Concomitant]
     Active Substance: METOCLOPRAMIDE HYDROCHLORIDE

REACTIONS (1)
  - Hospitalisation [None]
